FAERS Safety Report 18702274 (Version 1)
Quarter: 2021Q1

REPORT INFORMATION
  Report Type: Spontaneous
  Country: FR (occurrence: FR)
  Receive Date: 20210105
  Receipt Date: 20210105
  Transmission Date: 20210419
  Serious: Yes (Death, Hospitalization, Other)
  Sender: FDA-Public Use
  Company Number: FR-TAKEDA-2020TUS061434

PATIENT
  Age: 79 Year
  Sex: Female

DRUGS (9)
  1. TIAPRIDAL [Suspect]
     Active Substance: TIAPRIDE HYDROCHLORIDE
     Indication: BEHAVIOUR DISORDER
     Route: 048
     Dates: start: 2018, end: 20181109
  2. PROSTIGMINE [NEOSTIGMINE METILSULFATE] [Concomitant]
     Active Substance: NEOSTIGMINE METHYLSULFATE
     Route: 065
  3. MICROPAKINE [Suspect]
     Active Substance: VALPROATE SODIUM
     Indication: PRODUCT USED FOR UNKNOWN INDICATION
     Dosage: 100 MG PUIS 250 MG PUIS 500 MG
     Route: 048
     Dates: start: 20181004
  4. IMPORTAL [Concomitant]
     Active Substance: LACTITOL
     Route: 065
  5. TEMESTA (LORAZEPAM) [Suspect]
     Active Substance: LORAZEPAM
     Indication: PRODUCT USED FOR UNKNOWN INDICATION
     Dosage: 1.5 CP LE MATIN, 0.5 CP LE MIDI ET 1.5 CP LE SOIR
     Route: 048
     Dates: start: 20180813, end: 20181119
  6. LANSOYL [Concomitant]
     Active Substance: MINERAL OIL
     Route: 065
  7. PRIMPERAN [Suspect]
     Active Substance: METOCLOPRAMIDE HYDROCHLORIDE
     Indication: PRODUCT USED FOR UNKNOWN INDICATION
     Dosage: 10 MG/2 ML
     Route: 048
     Dates: start: 20180611
  8. DUROGESIC [Concomitant]
     Active Substance: FENTANYL
     Dosage: UNK
     Route: 065
  9. MESTINON [Concomitant]
     Active Substance: PYRIDOSTIGMINE BROMIDE
     Dosage: 60 MILLIGRAM
     Route: 065

REACTIONS (3)
  - Leukopenia [Not Recovered/Not Resolved]
  - Thrombocytopenia [Not Recovered/Not Resolved]
  - Death [Fatal]

NARRATIVE: CASE EVENT DATE: 20181106
